FAERS Safety Report 9842149 (Version 2)
Quarter: 2014Q3

REPORT INFORMATION
  Report Type: Report from Study
  Country: US (occurrence: US)
  Receive Date: 20140124
  Receipt Date: 20140705
  Transmission Date: 20150326
  Serious: Yes (Other)
  Sender: FDA-Public Use
  Company Number: US-ALEXION-A201304920

PATIENT

DRUGS (1)
  1. SOLIRIS [Suspect]
     Active Substance: ECULIZUMAB
     Indication: HAEMOLYTIC URAEMIC SYNDROME
     Dosage: UNK
     Route: 042

REACTIONS (10)
  - Confusional state [Unknown]
  - Pain [Unknown]
  - Platelet count decreased [Unknown]
  - Nausea [Unknown]
  - Abdominal pain [Unknown]
  - Fatigue [Unknown]
  - Haemolysis [Unknown]
  - Vomiting [Unknown]
  - Renal failure [Unknown]
  - Oedema [Unknown]
